FAERS Safety Report 12775335 (Version 1)
Quarter: 2016Q3

REPORT INFORMATION
  Report Type: Spontaneous
  Country: US (occurrence: US)
  Receive Date: 20160923
  Receipt Date: 20160923
  Transmission Date: 20161109
  Serious: No
  Sender: FDA-Public Use
  Company Number: US-BAXALTA-2016BLT006757

PATIENT
  Sex: Male

DRUGS (1)
  1. HYQVIA [Suspect]
     Active Substance: HUMAN IMMUNOGLOBULIN G\HYALURONIDASE RECOMBINANT HUMAN
     Indication: CONGENITAL HYPOGAMMAGLOBULINAEMIA
     Dosage: 70 G, EVERY 4 WK
     Route: 058
     Dates: start: 201411, end: 2016

REACTIONS (4)
  - Infusion site extravasation [Unknown]
  - Infusion site pain [Unknown]
  - Skin striae [Unknown]
  - Lethargy [Unknown]
